FAERS Safety Report 7101984-3 (Version None)
Quarter: 2010Q4

REPORT INFORMATION
  Report Type: 
  Country: None (occurrence: None)
  Receive Date: 20101115
  Receipt Date: 20101110
  Transmission Date: 20110411
  Serious: Yes (Life-Threatening, Hospitalization)
  Sender: FDA-Public Use
  Company Number: US-ELI_LILLY_AND_COMPANY-US201002002849

PATIENT
  Sex: Female
  Weight: 95.238 kg

DRUGS (9)
  1. BYETTA [Suspect]
     Indication: DIABETES MELLITUS
     Dosage: 10 UG, 2/D
     Dates: start: 20070901, end: 20090918
  2. LISINOPRIL [Concomitant]
     Dosage: 10 MG, DAILY (1/D)
  3. BUPROPION [Concomitant]
     Indication: DEPRESSION
  4. FUROSEMIDE [Concomitant]
     Dosage: 20 MG, DAILY (1/D)
  5. ALPRAZOLAM [Concomitant]
     Dosage: 0.5 MG, DAILY (1/D)
  6. TRAZODONE [Concomitant]
     Indication: INSOMNIA
  7. SIMVASTATIN [Concomitant]
  8. GLYBURIDE AND METFORMIN HCL [Concomitant]
  9. INSULIN [Concomitant]
     Dosage: UNK, UNKNOWN

REACTIONS (9)
  - CARDIAC FAILURE CONGESTIVE [None]
  - CORONARY ARTERY DISEASE [None]
  - DEHYDRATION [None]
  - HYPERKALAEMIA [None]
  - METABOLIC ACIDOSIS [None]
  - OFF LABEL USE [None]
  - PULMONARY HYPERTENSION [None]
  - RENAL FAILURE ACUTE [None]
  - VENTRICULAR TACHYCARDIA [None]
